FAERS Safety Report 12511359 (Version 1)
Quarter: 2016Q2

REPORT INFORMATION
  Report Type: Spontaneous
  Country: US (occurrence: US)
  Receive Date: 20160629
  Receipt Date: 20160629
  Transmission Date: 20160815
  Serious: Yes (Other)
  Sender: FDA-Public Use
  Company Number: US-EAGLE PHARMACEUTICALS, INC.-US-2016EAG000026

PATIENT

DRUGS (1)
  1. BENDEKA [Suspect]
     Active Substance: BENDAMUSTINE HYDROCHLORIDE
     Indication: NON-HODGKIN^S LYMPHOMA STAGE IV
     Dosage: 120 MG, DILUTED IN NORMAL SALINE TO BE GIVEN FOR 10 MINUTES
     Route: 065
     Dates: start: 20160324, end: 20160324

REACTIONS (7)
  - Anaphylactic reaction [Recovered/Resolved]
  - Flushing [Recovered/Resolved]
  - Paraesthesia [Recovered/Resolved]
  - Defaecation urgency [Recovered/Resolved]
  - Dyspnoea [Recovered/Resolved]
  - Chest pain [Recovered/Resolved]
  - Nausea [Recovered/Resolved]

NARRATIVE: CASE EVENT DATE: 20160324
